FAERS Safety Report 6847460-4 (Version None)
Quarter: 2010Q3

REPORT INFORMATION
  Report Type: 
  Country: None (occurrence: None)
  Receive Date: 20100716
  Receipt Date: 20100708
  Transmission Date: 20110219
  Serious: Yes (Life-Threatening, Hospitalization)
  Sender: FDA-Public Use
  Company Number: JP-JNJFOC-20100506133

PATIENT
  Sex: Female
  Weight: 31 kg

DRUGS (8)
  1. LEVOFLOXACIN [Suspect]
     Indication: BRONCHITIS
     Route: 048
  2. MENESIT [Concomitant]
     Indication: PARKINSONISM
  3. LANIRAPID [Concomitant]
     Indication: EXTRASYSTOLES
  4. MUCOSTA [Concomitant]
     Indication: GASTRITIS
  5. MUCODYNE [Concomitant]
     Indication: BRONCHITIS CHRONIC
  6. CLEANAL [Concomitant]
     Indication: BRONCHITIS CHRONIC
  7. BIOFERMIN [Concomitant]
     Indication: CONSTIPATION
  8. SIGMART [Concomitant]
     Indication: ANGINA PECTORIS

REACTIONS (3)
  - BLOOD SODIUM INCREASED [None]
  - DIABETIC HYPEROSMOLAR COMA [None]
  - DIARRHOEA [None]
